FAERS Safety Report 14482904 (Version 1)
Quarter: 2018Q1

REPORT INFORMATION
  Report Type: Spontaneous
  Country: FR (occurrence: FR)
  Receive Date: 20180203
  Receipt Date: 20180203
  Transmission Date: 20180509
  Serious: Yes (Hospitalization)
  Sender: FDA-Public Use
  Company Number: FR-SUN PHARMACEUTICAL INDUSTRIES LTD-2018RR-162276

PATIENT
  Age: 53 Year
  Sex: Male

DRUGS (1)
  1. SUMATRIPTAN. [Suspect]
     Active Substance: SUMATRIPTAN
     Indication: CLUSTER HEADACHE
     Dosage: AS NECESSARY
     Route: 058
     Dates: start: 201706, end: 201708

REACTIONS (1)
  - Peripheral ischaemia [Not Recovered/Not Resolved]

NARRATIVE: CASE EVENT DATE: 201712
